FAERS Safety Report 8322773-8 (Version None)
Quarter: 2012Q2

REPORT INFORMATION
  Report Type: 
  Country: None (occurrence: None)
  Receive Date: 20120427
  Receipt Date: 20120419
  Transmission Date: 20120825
  Serious: Yes (Hospitalization, Other)
  Sender: FDA-Public Use
  Company Number: 2009SP016952

PATIENT
  Age: 26 Year
  Sex: Female
  Weight: 147.419 kg

DRUGS (5)
  1. CLOTRIMAZOLE /00212501/ [Concomitant]
  2. PREMARIN [Concomitant]
  3. NUVARING [Suspect]
     Indication: CONTRACEPTION
     Dosage: 1 DF;QM;VAG
     Route: 067
     Dates: start: 20060301, end: 20060921
  4. DIFLUCAN [Concomitant]
  5. BENEFIBER /01648102/ [Concomitant]

REACTIONS (26)
  - MICROCYTOSIS [None]
  - RECTAL HAEMORRHAGE [None]
  - BRONCHITIS [None]
  - BARTHOLIN'S ABSCESS [None]
  - INFECTION [None]
  - FUNGAL INFECTION [None]
  - HEADACHE [None]
  - UPPER-AIRWAY COUGH SYNDROME [None]
  - NO THERAPEUTIC RESPONSE [None]
  - PLATELET COUNT INCREASED [None]
  - ASTHENIA [None]
  - PULMONARY EMBOLISM [None]
  - PRODUCTIVE COUGH [None]
  - CHEST DISCOMFORT [None]
  - OEDEMA PERIPHERAL [None]
  - SINUSITIS [None]
  - NASAL CONGESTION [None]
  - NASAL TURBINATE HYPERTROPHY [None]
  - VAGINAL INFECTION [None]
  - HAEMORRHOIDS [None]
  - CONJUNCTIVITIS [None]
  - PULMONARY CONGESTION [None]
  - FACIAL PAIN [None]
  - RHINORRHOEA [None]
  - RHINITIS ALLERGIC [None]
  - CONSTIPATION [None]
